FAERS Safety Report 16642797 (Version 4)
Quarter: 2019Q3

REPORT INFORMATION
  Report Type: Spontaneous
  Country: US (occurrence: US)
  Receive Date: 20190729
  Receipt Date: 20190813
  Transmission Date: 20191004
  Serious: Yes (Other)
  Sender: FDA-Public Use
  Company Number: US-PFIZER INC-2019321117

PATIENT
  Age: 69 Year
  Sex: Male
  Weight: 79.38 kg

DRUGS (1)
  1. GABAPENTIN. [Suspect]
     Active Substance: GABAPENTIN
     Dosage: 100 MG, 1X/DAY
     Route: 048
     Dates: start: 20181009, end: 20181014

REACTIONS (4)
  - Tremor [Recovering/Resolving]
  - Sedation [Recovering/Resolving]
  - Sleep disorder [Recovering/Resolving]
  - Heart rate decreased [Recovered/Resolved]

NARRATIVE: CASE EVENT DATE: 201810
